FAERS Safety Report 6214153-6 (Version None)
Quarter: 2009Q2

REPORT INFORMATION
  Report Type: 
  Country: None (occurrence: None)
  Receive Date: 20090604
  Receipt Date: 20090601
  Transmission Date: 20091009
  Serious: Yes (Hospitalization, Other)
  Sender: FDA-Public Use
  Company Number: ES-BRISTOL-MYERS SQUIBB COMPANY-14645659

PATIENT
  Age: 61 Year
  Sex: Female
  Weight: 62 kg

DRUGS (13)
  1. PACLITAXEL [Suspect]
     Indication: NON-SMALL CELL LUNG CANCER
     Route: 042
     Dates: start: 20090330, end: 20090330
  2. PARAPLATIN [Suspect]
     Indication: NON-SMALL CELL LUNG CANCER
     Route: 042
     Dates: start: 20090330, end: 20090330
  3. CP-751,871 [Suspect]
     Indication: NON-SMALL CELL LUNG CANCER
     Route: 042
     Dates: start: 20090330, end: 20090330
  4. PARACETAMOL [Concomitant]
     Indication: TUMOUR PAIN
     Dates: start: 20090317
  5. TRAMADOL HCL [Concomitant]
     Indication: TUMOUR PAIN
     Dates: start: 20090317
  6. DEXKETOPROFEN TROMETAMOL [Concomitant]
     Indication: TUMOUR PAIN
     Dates: start: 20090317
  7. CODEINE SUL TAB [Concomitant]
     Indication: TUMOUR PAIN
     Dates: start: 20090414
  8. FUROSEMIDE [Concomitant]
  9. GALENIC [Concomitant]
  10. SALMETEROL + FLUTICASONE [Concomitant]
  11. OMEPRAZOL [Concomitant]
     Indication: PROPHYLAXIS
     Dates: start: 20090317
  12. LORMETAZEPAM [Concomitant]
  13. BROMAZEPAM [Concomitant]

REACTIONS (4)
  - ANAEMIA [None]
  - CARDIOTOXICITY [None]
  - PLEURAL EFFUSION [None]
  - RENAL FAILURE [None]
